FAERS Safety Report 21191312 (Version 2)
Quarter: 2022Q3

REPORT INFORMATION
  Report Type: Report from Study
  Country: US (occurrence: US)
  Receive Date: 20220809
  Receipt Date: 20220816
  Transmission Date: 20221027
  Serious: Yes (Hospitalization)
  Sender: FDA-Public Use
  Company Number: US-Taiho Oncology Inc-EU-2022-01543

PATIENT
  Sex: Male
  Weight: 74.002 kg

DRUGS (2)
  1. LONSURF [Suspect]
     Active Substance: TIPIRACIL HYDROCHLORIDE\TRIFLURIDINE
     Indication: Rectosigmoid cancer
     Dosage: CURRENT CYCLE UNKNOWN
     Route: 048
     Dates: start: 20220509
  2. STIVARGA [Suspect]
     Active Substance: REGORAFENIB
     Indication: Product used for unknown indication
     Dates: start: 20220704

REACTIONS (8)
  - Hepatic failure [Unknown]
  - Confusional state [Unknown]
  - Tremor [Unknown]
  - Dysphonia [Unknown]
  - Chromaturia [Unknown]
  - Asthenia [Unknown]
  - Fatigue [Unknown]
  - Accidental underdose [Unknown]
